FAERS Safety Report 8585392-4 (Version None)
Quarter: 2012Q3

REPORT INFORMATION
  Report Type: 
  Country: None (occurrence: None)
  Receive Date: 20120810
  Receipt Date: 20120807
  Transmission Date: 20120928
  Serious: Yes (Death, Hospitalization)
  Sender: FDA-Public Use
  Company Number: FR-SANOFI-AVENTIS-2012SA056317

PATIENT
  Age: 87 Year
  Sex: Male

DRUGS (17)
  1. CLOPIDOGREL BISULFATE AND ASPIRIN [Interacting]
     Indication: ACUTE CORONARY SYNDROME
     Route: 048
     Dates: start: 20120101, end: 20120626
  2. ATORVASTATIN [Concomitant]
     Route: 048
  3. ALDACTONE [Concomitant]
     Route: 048
  4. CORDARONE [Interacting]
     Route: 048
     Dates: start: 20120702
  5. PLAVIX [Interacting]
     Route: 048
     Dates: start: 20120629, end: 20120629
  6. BISOPROLOL FUMARATE [Concomitant]
     Route: 048
  7. LASIX [Concomitant]
     Route: 048
  8. PERMIXON [Concomitant]
     Route: 048
  9. RAMIPRIL [Concomitant]
     Route: 048
     Dates: end: 20120626
  10. LOVENOX [Suspect]
     Indication: ATRIAL FIBRILLATION
     Route: 058
     Dates: start: 20120629, end: 20120702
  11. ASPEGIC 1000 [Interacting]
     Indication: PAIN
     Route: 042
     Dates: start: 20120627
  12. CORDARONE [Interacting]
     Indication: ATRIAL FIBRILLATION
     Route: 048
     Dates: start: 20120629, end: 20120629
  13. ASPIRIN [Interacting]
     Route: 048
     Dates: start: 20120629, end: 20120629
  14. CORDARONE [Interacting]
     Route: 048
     Dates: start: 20120630, end: 20120701
  15. ASPEGIC 1000 [Interacting]
     Route: 048
     Dates: start: 20120702, end: 20120702
  16. PREVISCAN [Interacting]
     Indication: ATRIAL FIBRILLATION
     Route: 048
     Dates: start: 20120101, end: 20120626
  17. ALFUZOSIN HYDROCHLORIDE [Concomitant]
     Route: 048

REACTIONS (4)
  - PERITONEAL HAEMORRHAGE [None]
  - PLEURAL EFFUSION [None]
  - PERICARDIAL EFFUSION [None]
  - MUSCLE HAEMORRHAGE [None]
